FAERS Safety Report 8455969-5 (Version None)
Quarter: 2012Q2

REPORT INFORMATION
  Report Type: 
  Country: None (occurrence: None)
  Receive Date: 20120621
  Receipt Date: 20120606
  Transmission Date: 20120825
  Serious: Yes (Other)
  Sender: FDA-Public Use
  Company Number: US-ROCHE-1055754

PATIENT
  Sex: Female

DRUGS (12)
  1. HERCEPTIN [Suspect]
     Dosage: FIRST THERAPY OF HERCEPTIN
     Route: 042
  2. HERCEPTIN [Suspect]
     Route: 042
     Dates: start: 20120101
  3. TYKERB [Suspect]
     Indication: BREAST CANCER
     Dates: start: 20091201
  4. HERCEPTIN [Suspect]
     Indication: BREAST CANCER
     Route: 037
     Dates: start: 20120112
  5. TAXOL [Suspect]
     Indication: BREAST CANCER
  6. XELODA [Suspect]
     Indication: BREAST CANCER
     Dosage: TWO WEEK ON AND ONE WEEK OFF.
     Dates: start: 20091201
  7. XELODA [Suspect]
     Dates: start: 20101101
  8. NAVELBINE [Suspect]
     Indication: BREAST CANCER
     Route: 042
  9. NAVELBINE [Suspect]
     Dosage: DOSE REDUCE THREE WEEKS ON ADNONE WEEK OFF
     Route: 042
  10. HERCEPTIN [Suspect]
     Route: 042
     Dates: start: 20120101
  11. HERCEPTIN [Suspect]
     Dosage: REDUCTION FREQUENCY
     Route: 037
     Dates: start: 20120101
  12. HERCEPTIN [Suspect]
     Route: 037
     Dates: start: 20120101

REACTIONS (9)
  - PALMAR-PLANTAR ERYTHRODYSAESTHESIA SYNDROME [None]
  - WHITE BLOOD CELL COUNT DECREASED [None]
  - MUSCULOSKELETAL STIFFNESS [None]
  - METASTASES TO SPINE [None]
  - THERAPEUTIC RESPONSE UNEXPECTED [None]
  - PAIN IN EXTREMITY [None]
  - HEADACHE [None]
  - BRAIN NEOPLASM [None]
  - BACK PAIN [None]
